FAERS Safety Report 4469078-3 (Version None)
Quarter: 2004Q4

REPORT INFORMATION
  Report Type: 
  Country: None (occurrence: None)
  Receive Date: 20041001
  Receipt Date: 20040916
  Transmission Date: 20050328
  Serious: Yes (Other)
  Sender: FDA-Public Use
  Company Number: 2004-0007499

PATIENT
  Sex: Male

DRUGS (3)
  1. VIREAD [Suspect]
  2. CRIXIVAN [Suspect]
  3. RITONAVIR (RITONAVIR) [Suspect]

REACTIONS (3)
  - DIALYSIS [None]
  - NEPHROLITHIASIS [None]
  - RENAL IMPAIRMENT [None]
